FAERS Safety Report 5657929-6 (Version None)
Quarter: 2008Q1

REPORT INFORMATION
  Report Type: 
  Country: None (occurrence: None)
  Receive Date: 20080305
  Receipt Date: 20080218
  Transmission Date: 20080703
  Serious: Yes (Other)
  Sender: FDA-Public Use
  Company Number: DSA_31491_2008

PATIENT
  Sex: Female
  Weight: 150 kg

DRUGS (3)
  1. LORAX /00273201/ (LORAX - LORAZEPAM) 1 MG (NOT SPECIFIED) [Suspect]
     Indication: ANXIETY
     Dosage: (1 MG QD ORAL)
     Route: 048
     Dates: start: 20071112, end: 20080208
  2. LORAX /00273201/ (LORAX - LORAZEPAM) 1 MG (NOT SPECIFIED) [Suspect]
     Indication: INSOMNIA
     Dosage: (1 MG QD ORAL)
     Route: 048
     Dates: start: 20071112, end: 20080208
  3. VENLAFAXINE HYDROCHLORIDE [Concomitant]

REACTIONS (19)
  - ABDOMINAL PAIN LOWER [None]
  - ANXIETY [None]
  - COORDINATION ABNORMAL [None]
  - DISTURBANCE IN ATTENTION [None]
  - DYSGRAPHIA [None]
  - DYSURIA [None]
  - HYPOAESTHESIA [None]
  - IMPAIRED DRIVING ABILITY [None]
  - IMPAIRED WORK ABILITY [None]
  - IMPATIENCE [None]
  - INSOMNIA [None]
  - JUDGEMENT IMPAIRED [None]
  - MYDRIASIS [None]
  - NAUSEA [None]
  - RASH PRURITIC [None]
  - SKIN BURNING SENSATION [None]
  - SOMNOLENCE [None]
  - VISUAL DISTURBANCE [None]
  - WEIGHT DECREASED [None]
